FAERS Safety Report 4674970-0 (Version None)
Quarter: 2005Q2

REPORT INFORMATION
  Report Type: 
  Country: None (occurrence: None)
  Receive Date: 20050526
  Receipt Date: 20050516
  Transmission Date: 20051028
  Serious: Yes (Hospitalization)
  Sender: FDA-Public Use
  Company Number: 2005075997

PATIENT
  Age: 51 Year
  Sex: Male
  Weight: 83.9154 kg

DRUGS (14)
  1. BEXTRA [Suspect]
     Indication: BACK INJURY
     Dosage: 40 MG (20 MG, 2 IN 1 D), ORAL
     Route: 048
     Dates: start: 20040326
  2. BEXTRA [Suspect]
     Indication: HEADACHE
     Dosage: 40 MG (20 MG, 2 IN 1 D), ORAL
     Route: 048
     Dates: start: 20040326
  3. TEMAZEPAM [Concomitant]
     Indication: DEPRESSION
     Dosage: 100 MG (100 MG, 1 IN 1 D), ORAL
     Route: 048
     Dates: start: 20040421
  4. PAROXETINE HCL [Concomitant]
  5. ULTRAM [Concomitant]
  6. AMBIEN [Concomitant]
  7. LIPITOR [Concomitant]
  8. CARISOPRODOL [Concomitant]
  9. TOPOMAX (TOPIRAMATE) [Concomitant]
  10. BUTALBITAL, ACETAMINOPHEN + CAFFEINE (BUTALBITAL, CAFFEINE, PARACETAMO [Concomitant]
  11. DOXEPIN HCL [Concomitant]
  12. XANAX [Concomitant]
  13. ZOLOFT [Suspect]
     Indication: DEPRESSION
     Dosage: 100 MG (100 MG, 1 IN 1 D ), ORAL
     Route: 048
     Dates: start: 20040421
  14. FOSINOPRIL SODIUM [Concomitant]

REACTIONS (8)
  - ANGINA PECTORIS [None]
  - DRUG INEFFECTIVE [None]
  - HYPERTENSION [None]
  - INCORRECT DOSE ADMINISTERED [None]
  - INCREASED UPPER AIRWAY SECRETION [None]
  - LOSS OF CONSCIOUSNESS [None]
  - OXYGEN SATURATION DECREASED [None]
  - POOR PERIPHERAL CIRCULATION [None]
